FAERS Safety Report 5050283-2 (Version None)
Quarter: 2006Q3

REPORT INFORMATION
  Report Type: 
  Country: None (occurrence: None)
  Receive Date: 20060713
  Receipt Date: 20060630
  Transmission Date: 20061208
  Serious: Yes (Death)
  Sender: FDA-Public Use
  Company Number: 2006AC01224

PATIENT
  Age: 15949 Day
  Sex: Male
  Weight: 87 kg

DRUGS (6)
  1. CRESTOR [Suspect]
     Indication: HYPERCHOLESTEROLAEMIA
     Route: 048
     Dates: start: 20030701
  2. AVANDIA [Concomitant]
     Indication: DIABETES MELLITUS
     Route: 048
     Dates: start: 20050801
  3. METFORMIN [Concomitant]
     Indication: DIABETES MELLITUS
     Route: 048
     Dates: start: 20030701
  4. ASCAL [Concomitant]
     Indication: ILL-DEFINED DISORDER
     Route: 048
     Dates: start: 20030701
  5. THYRAX [Concomitant]
     Indication: HYPOTHYROIDISM
     Route: 048
     Dates: start: 20030701
  6. AERIUS [Concomitant]
     Route: 048
     Dates: start: 20060620

REACTIONS (5)
  - CARDIAC ARREST [None]
  - CHEST PAIN [None]
  - COUGH [None]
  - FALL [None]
  - NASAL CONGESTION [None]
